FAERS Safety Report 20670409 (Version 2)
Quarter: 2023Q1

REPORT INFORMATION
  Report Type: Spontaneous
  Country: US (occurrence: US)
  Receive Date: 20220404
  Receipt Date: 20230131
  Transmission Date: 20230417
  Serious: No
  Sender: FDA-Public Use
  Company Number: US-BRISTOL-MYERS SQUIBB COMPANY-2022-012464

PATIENT
  Age: 66 Year
  Sex: Female
  Weight: 52.5 kg

DRUGS (2)
  1. REVLIMID [Suspect]
     Active Substance: LENALIDOMIDE
     Indication: Plasma cell myeloma
     Dosage: FREQUENCY : DAILY 21 DAYS ON 7 OFF
     Route: 048
     Dates: start: 20160719
  2. REVLIMID [Suspect]
     Active Substance: LENALIDOMIDE
     Dosage: FREQUENCY : DAILY 21 DAYS ON 7 OFF
     Route: 048
     Dates: start: 20211026

REACTIONS (2)
  - Hypersensitivity [Unknown]
  - Intentional product use issue [Unknown]
